FAERS Safety Report 4517031-3 (Version None)
Quarter: 2005Q1

REPORT INFORMATION
  Report Type: 
  Country: None (occurrence: None)
  Receive Date: 20041029
  Receipt Date: 20040929
  Transmission Date: 20050727
  Serious: No
  Sender: FDA-Public Use
  Company Number: 2004-120726-NL

PATIENT
  Age: 33 Year
  Sex: Female

DRUGS (3)
  1. NUVARING [Suspect]
     Indication: CONTRACEPTION
     Dosage: DF DAILY VAGINAL
     Route: 067
     Dates: start: 20030101
  2. MULTI-VITAMINS [Concomitant]
  3. PSEUDEPHEDRINE [Concomitant]

REACTIONS (1)
  - METRORRHAGIA [None]
